FAERS Safety Report 4374226-X (Version None)
Quarter: 2004Q2

REPORT INFORMATION
  Report Type: 
  Country: None (occurrence: None)
  Receive Date: 20040604
  Receipt Date: 20040518
  Transmission Date: 20050107
  Serious: Yes (Death, Other)
  Sender: FDA-Public Use
  Company Number: KII-2001-0000531

PATIENT
  Age: 48 Year
  Sex: Female

DRUGS (7)
  1. OXYCONTIN [Suspect]
     Indication: DRUG USE FOR UNKNOWN INDICATION
     Dosage: 40 MG, BID, ORAL
     Route: 048
  2. COCAINE (COCAINE) [Suspect]
     Indication: DRUG USE FOR UNKNOWN INDICATION
  3. ZYPREXA [Concomitant]
  4. XANAX [Concomitant]
  5. ZOLOFT [Concomitant]
  6. LEVOXYL [Concomitant]
  7. PRILOSEC [Concomitant]

REACTIONS (3)
  - DRUG ABUSER [None]
  - DRUG TOXICITY [None]
  - MYOCARDIAL INFARCTION [None]
